FAERS Safety Report 23486772 (Version 6)
Quarter: 2024Q2

REPORT INFORMATION
  Report Type: Spontaneous
  Country: JP (occurrence: JP)
  Receive Date: 20240206
  Receipt Date: 20240509
  Transmission Date: 20240716
  Serious: Yes (Death, Hospitalization, Other)
  Sender: FDA-Public Use
  Company Number: JP-PFIZER INC-PV202400017036

PATIENT
  Age: 76 Year
  Sex: Male
  Weight: 73.8 kg

DRUGS (9)
  1. BOSULIF [Suspect]
     Active Substance: BOSUTINIB MONOHYDRATE
     Indication: Chronic myeloid leukaemia
     Dosage: 200 MG, 1X/DAY
     Route: 048
     Dates: start: 20230825, end: 20230916
  2. TOPIROXOSTAT [Concomitant]
     Active Substance: TOPIROXOSTAT
     Dosage: 20 MG, 2X/DAY
     Route: 048
     Dates: start: 20110706, end: 20231120
  3. TOPIROXOSTAT [Concomitant]
     Active Substance: TOPIROXOSTAT
     Dosage: UNK
  4. TOFRANIL [Concomitant]
     Active Substance: IMIPRAMINE HYDROCHLORIDE
     Dosage: 10 MG, 2X/DAY
     Route: 048
     Dates: start: 20060810, end: 20231120
  5. SULPIRIDE [Concomitant]
     Active Substance: SULPIRIDE
     Dosage: 50 MG, 2X/DAY
     Route: 048
     Dates: start: 20060810, end: 20231022
  6. CERCINE [Concomitant]
     Active Substance: DIAZEPAM
     Dosage: 2 MG, 2X/DAY
     Route: 048
     Dates: start: 20060810, end: 20231022
  7. CLOXAZOLAM [Concomitant]
     Active Substance: CLOXAZOLAM
     Dosage: 2 MG, 3X/DAY
     Route: 048
     Dates: start: 20060810, end: 20231029
  8. AMLODIPINE [Concomitant]
     Active Substance: AMLODIPINE BESYLATE
     Dosage: 5 MG, 1X/DAY
     Route: 048
     Dates: start: 20110706, end: 20231120
  9. CANDESARTAN [Concomitant]
     Active Substance: CANDESARTAN
     Dosage: 8 MG, 1X/DAY
     Route: 048
     Dates: start: 20110706, end: 20231023

REACTIONS (8)
  - Interstitial lung disease [Fatal]
  - Respiratory failure [Fatal]
  - Hepatic function abnormal [Unknown]
  - Pneumocystis jirovecii pneumonia [Unknown]
  - Loss of personal independence in daily activities [Unknown]
  - Pyrexia [Unknown]
  - Oxygen saturation decreased [Unknown]
  - Pleural effusion [Unknown]

NARRATIVE: CASE EVENT DATE: 20230907
